FAERS Safety Report 25426907 (Version 1)
Quarter: 2025Q2

REPORT INFORMATION
  Report Type: Spontaneous
  Country: TR (occurrence: TR)
  Receive Date: 20250612
  Receipt Date: 20250612
  Transmission Date: 20250717
  Serious: Yes (Other)
  Sender: ROCHE
  Company Number: TR-ROCHE-10000306354

PATIENT
  Age: 48 Year
  Sex: Female
  Weight: 103 kg

DRUGS (1)
  1. MABTHERA [Suspect]
     Active Substance: RITUXIMAB
     Indication: Vasculitis
     Route: 042
     Dates: start: 20250526, end: 20250526

REACTIONS (3)
  - Respiratory distress [Unknown]
  - Hypertension [Unknown]
  - Ocular hyperaemia [Unknown]

NARRATIVE: CASE EVENT DATE: 20250526
